FAERS Safety Report 5585193-5 (Version None)
Quarter: 2008Q1

REPORT INFORMATION
  Report Type: 
  Country: None (occurrence: None)
  Receive Date: 20080109
  Receipt Date: 20080102
  Transmission Date: 20080703
  Serious: Yes (Other)
  Sender: FDA-Public Use
  Company Number: PHBS2007IE19142

PATIENT
  Age: 55 Year
  Sex: Male

DRUGS (3)
  1. CYCLOSPORINE [Suspect]
     Route: 065
  2. BETA BLOCKING AGENTS [Suspect]
  3. DIURETICS [Suspect]

REACTIONS (4)
  - ARTHRALGIA [None]
  - GOUT [None]
  - GOUTY ARTHRITIS [None]
  - GOUTY TOPHUS [None]
